FAERS Safety Report 10331312 (Version 1)
Quarter: 2014Q3

REPORT INFORMATION
  Report Type: Spontaneous
  Country: US (occurrence: None)
  Receive Date: 20140721
  Receipt Date: 20140721
  Transmission Date: 20150326
  Serious: Yes (Hospitalization)
  Sender: FDA-Public Use
  Company Number: None

PATIENT
  Age: 63 Year
  Sex: Male
  Weight: 74.2 kg

DRUGS (1)
  1. CETUXIMAB [Suspect]
     Active Substance: CETUXIMAB
     Dosage: 498 MG 250 MG/M2=498 MG IV OVER 60 MIN VIA 0.22 MICRON FILTER WEEKLY

REACTIONS (2)
  - Rash [None]
  - Oral discomfort [None]

NARRATIVE: CASE EVENT DATE: 20130603
